FAERS Safety Report 4504601-1 (Version None)
Quarter: 2004Q4

REPORT INFORMATION
  Report Type: 
  Country: None (occurrence: None)
  Receive Date: 20041116
  Receipt Date: 20041109
  Transmission Date: 20050328
  Serious: Yes (Other)
  Sender: FDA-Public Use
  Company Number: HQWYE317809NOV04

PATIENT

DRUGS (1)
  1. CORDAREX (AMIODARONE, INJECTION) [Suspect]
     Dosage: 150 MG (DOSE AND FREQUENCY UNKNOWN) INTRAVENOUS
     Route: 042

REACTIONS (2)
  - INFUSION RELATED REACTION [None]
  - LOSS OF CONSCIOUSNESS [None]
